FAERS Safety Report 12689113 (Version 1)
Quarter: 2016Q3

REPORT INFORMATION
  Report Type: Spontaneous
  Country: US (occurrence: None)
  Receive Date: 20160825
  Receipt Date: 20160825
  Transmission Date: 20161109
  Serious: No
  Sender: FDA-Public Use
  Company Number: None

PATIENT
  Age: 29 Year
  Sex: Female

DRUGS (3)
  1. MAKENA [Suspect]
     Active Substance: HYDROXYPROGESTERONE CAPROATE
     Indication: PREMATURE LABOUR
     Route: 030
     Dates: start: 20160620
  2. PRENATALS [Concomitant]
  3. MAG CITRATE [Concomitant]

REACTIONS (3)
  - Injection site pruritus [None]
  - Blood glucose increased [None]
  - Muscle contractions involuntary [None]

NARRATIVE: CASE EVENT DATE: 201608
